FAERS Safety Report 17881712 (Version 1)
Quarter: 2020Q2

REPORT INFORMATION
  Report Type: Spontaneous
  Country: US (occurrence: US)
  Receive Date: 20200610
  Receipt Date: 20200610
  Transmission Date: 20200714
  Serious: Yes (Death, Disabling, Other)
  Sender: FDA-Public Use
  Company Number: US-SA-2020SA148252

PATIENT

DRUGS (1)
  1. ZANTAC [Suspect]
     Active Substance: RANITIDINE HYDROCHLORIDE
     Dosage: UNK
     Dates: start: 2011, end: 2013

REACTIONS (7)
  - Pain [Unknown]
  - Condition aggravated [Fatal]
  - Disability [Unknown]
  - Anxiety [Unknown]
  - Anhedonia [Unknown]
  - Renal cancer [Fatal]
  - Injury [Fatal]
